FAERS Safety Report 6891550-7 (Version None)
Quarter: 2010Q3

REPORT INFORMATION
  Report Type: 
  Country: None (occurrence: None)
  Receive Date: 20100731
  Receipt Date: 20070807
  Transmission Date: 20110219
  Serious: Yes (Other)
  Sender: FDA-Public Use
  Company Number: US-PFIZER INC-2007066020

PATIENT
  Sex: Male
  Weight: 110 kg

DRUGS (6)
  1. CAMPTOSAR [Suspect]
     Indication: ABDOMINAL NEOPLASM
     Dosage: EVERY DAY
     Dates: start: 20070730, end: 20070803
  2. ZOFRAN [Concomitant]
  3. CYMBALTA [Concomitant]
  4. MORPHINE [Concomitant]
  5. KYTRIL [Concomitant]
  6. EMEND [Concomitant]

REACTIONS (1)
  - DIARRHOEA [None]
